FAERS Safety Report 7631063-8 (Version None)
Quarter: 2011Q3

REPORT INFORMATION
  Report Type: 
  Country: None (occurrence: None)
  Receive Date: 20110715
  Receipt Date: 20110708
  Transmission Date: 20111222
  Serious: Yes (Hospitalization)
  Sender: FDA-Public Use
  Company Number: 2011SP028926

PATIENT
  Age: 71 Year
  Sex: Female
  Weight: 70 kg

DRUGS (12)
  1. ACETAMINOPHEN [Concomitant]
  2. TOCO [Concomitant]
  3. LERCANIDIPINE [Concomitant]
  4. REBETOL [Suspect]
     Indication: HEPATITIS C
     Dosage: 200 MG; BID
     Dates: start: 20110509
  5. VIRAFERONPEG [Suspect]
     Indication: HEPATITIS C
     Dosage: 100 MCG;QW;SC
     Route: 058
     Dates: start: 20110509
  6. NEBIVOLOL HCL [Concomitant]
  7. LANSOPRAZOLE [Concomitant]
  8. ESCITALOPRAM OXALATE [Concomitant]
  9. BOCEPREVIR (SCH-503034) [Suspect]
     Indication: HEPATITIS C
     Dosage: 800 MG;TID
     Dates: start: 20110606
  10. FOLIC ACID [Concomitant]
  11. IRBESARTAN AND HYDROCHLOROTHIAZIDE [Concomitant]
  12. ASCORBIC ACID [Concomitant]

REACTIONS (22)
  - BLOOD PRESSURE SYSTOLIC INCREASED [None]
  - BODY TEMPERATURE DECREASED [None]
  - BLOOD BILIRUBIN INCREASED [None]
  - BILIRUBIN CONJUGATED INCREASED [None]
  - DIARRHOEA [None]
  - BLOOD CALCIUM DECREASED [None]
  - HYPOKALAEMIA [None]
  - GAMMA-GLUTAMYLTRANSFERASE INCREASED [None]
  - PANCYTOPENIA [None]
  - PAIN [None]
  - NO THERAPEUTIC RESPONSE [None]
  - CARDIAC MURMUR [None]
  - NAUSEA [None]
  - C-REACTIVE PROTEIN INCREASED [None]
  - DYSURIA [None]
  - GENERAL PHYSICAL HEALTH DETERIORATION [None]
  - ASTHENIA [None]
  - DYSPNOEA EXERTIONAL [None]
  - CHEST PAIN [None]
  - VOMITING [None]
  - ABDOMINAL PAIN [None]
  - ANAEMIA MACROCYTIC [None]
